FAERS Safety Report 9410450 (Version 1)
Quarter: 2013Q3

REPORT INFORMATION
  Report Type: Report from Study
  Country: TR (occurrence: TR)
  Receive Date: 20130719
  Receipt Date: 20130719
  Transmission Date: 20140515
  Serious: Yes (Other)
  Sender: FDA-Public Use
  Company Number: TR-US-EMD SERONO, INC.-7224117

PATIENT
  Sex: Female
  Weight: 90 kg

DRUGS (6)
  1. REBIF [Suspect]
     Indication: MULTIPLE SCLEROSIS
     Route: 058
     Dates: start: 20070214
  2. CIPRALEX [Suspect]
     Indication: ANTIDEPRESSANT THERAPY
     Route: 048
     Dates: start: 2010
  3. BELOC [Suspect]
     Indication: PALPITATIONS
     Route: 048
     Dates: start: 2008
  4. ECOPIRIN [Concomitant]
     Indication: PLATELET AGGREGATION INHIBITION
     Route: 048
     Dates: start: 2008
  5. PAROL [Concomitant]
     Indication: PAIN
     Route: 048
     Dates: start: 2007
  6. PAROL [Concomitant]
     Indication: ANTIPYRESIS

REACTIONS (2)
  - Cervical dysplasia [Not Recovered/Not Resolved]
  - Menstruation irregular [Not Recovered/Not Resolved]
